FAERS Safety Report 7917914-8 (Version None)
Quarter: 2011Q4

REPORT INFORMATION
  Report Type: 
  Country: None (occurrence: None)
  Receive Date: 20111116
  Receipt Date: 20111110
  Transmission Date: 20120403
  Serious: Yes (Hospitalization)
  Sender: FDA-Public Use
  Company Number: PHEH2011US009083

PATIENT
  Sex: Male

DRUGS (2)
  1. FUROSEMIDE [Concomitant]
  2. EXJADE [Suspect]
     Dosage: 500 MG, QID

REACTIONS (2)
  - DEHYDRATION [None]
  - FALL [None]
